FAERS Safety Report 17088779 (Version 1)
Quarter: 2019Q4

REPORT INFORMATION
  Report Type: Spontaneous
  Country: US (occurrence: US)
  Receive Date: 20191128
  Receipt Date: 20191128
  Transmission Date: 20200122
  Serious: Yes (Hospitalization)
  Sender: FDA-Public Use
  Company Number: US-ASTRAZENECA-2019SF69480

PATIENT
  Sex: Female
  Weight: 5.5 kg

DRUGS (5)
  1. FAMOTIDINE. [Concomitant]
     Active Substance: FAMOTIDINE
  2. ERYTHROMYCIN. [Concomitant]
     Active Substance: ERYTHROMYCIN
  3. BACITRACIN. [Concomitant]
     Active Substance: BACITRACIN
  4. SYNAGIS [Suspect]
     Active Substance: PALIVIZUMAB
     Indication: ANTIVIRAL PROPHYLAXIS
     Route: 030
     Dates: start: 201812
  5. LACTULOSE. [Concomitant]
     Active Substance: LACTULOSE

REACTIONS (2)
  - Bronchitis [Unknown]
  - Pneumonia [Unknown]
